APPROVED DRUG PRODUCT: CHLOR-TRIMETON
Active Ingredient: CHLORPHENIRAMINE MALEATE
Strength: 2MG/5ML
Dosage Form/Route: SYRUP;ORAL
Application: N006921 | Product #006
Applicant: SCHERING CORP SUB SCHERING PLOUGH CORP
Approved: Approved Prior to Jan 1, 1982 | RLD: No | RS: No | Type: DISCN